FAERS Safety Report 7428533-4 (Version None)
Quarter: 2011Q2

REPORT INFORMATION
  Report Type: 
  Country: None (occurrence: None)
  Receive Date: 20110421
  Receipt Date: 20110411
  Transmission Date: 20111010
  Serious: Yes (Hospitalization)
  Sender: FDA-Public Use
  Company Number: JP-SANOFI-AVENTIS-2011SA012341

PATIENT
  Age: 77 Year
  Sex: Female

DRUGS (5)
  1. XELODA [Suspect]
     Indication: RECTAL CANCER RECURRENT
     Route: 048
     Dates: start: 20101104, end: 20110121
  2. AVASTIN [Suspect]
     Indication: RECTAL CANCER RECURRENT
     Route: 042
     Dates: start: 20101104, end: 20101104
  3. AVASTIN [Suspect]
     Route: 042
  4. OXALIPLATIN [Suspect]
     Route: 041
  5. OXALIPLATIN [Suspect]
     Indication: RECTAL CANCER
     Route: 041

REACTIONS (3)
  - BEDRIDDEN [None]
  - ALTERED STATE OF CONSCIOUSNESS [None]
  - APHASIA [None]
